FAERS Safety Report 7798706 (Version 6)
Quarter: 2013Q3

REPORT INFORMATION
  Report Type: Report from Study
  Country: FR (occurrence: FR)
  Receive Date: 20110203
  Receipt Date: 20130807
  Transmission Date: 20140515
  Serious: Yes (Death, Other)
  Sender: FDA-Public Use
  Company Number: FR-MERCK-1101FRA00149

PATIENT
  Sex: Male
  Weight: 94 kg

DRUGS (8)
  1. SITAGLIPTIN PHOSPHATE [Suspect]
     Dosage: 100 MG, QD
     Dates: start: 20091019, end: 20100315
  2. GLUCOR [Concomitant]
     Indication: TYPE 2 DIABETES MELLITUS
     Dosage: 100 MG, TID
     Route: 048
     Dates: start: 200908
  3. CORDARONE [Concomitant]
     Dosage: UNK
     Route: 048
     Dates: start: 20000308, end: 20100315
  4. LASILIX [Concomitant]
     Dosage: UNK
     Route: 048
     Dates: start: 20000308, end: 20100315
  5. SERETIDE [Concomitant]
     Dosage: UNK
     Route: 048
     Dates: start: 20000308, end: 20100315
  6. TAMSULOSIN HYDROCHLORIDE [Concomitant]
     Dosage: UNK
     Route: 048
     Dates: start: 20000308, end: 20100315
  7. POTASSIUM GLUCONATE [Concomitant]
     Route: 048
  8. KENZEN [Suspect]
     Dosage: UNK
     Dates: start: 20000308, end: 20100315

REACTIONS (2)
  - Cerebrovascular accident [Fatal]
  - Cardiac arrest [Fatal]
